FAERS Safety Report 11776888 (Version 2)
Quarter: 2015Q4

REPORT INFORMATION
  Report Type: Spontaneous
  Country: GB (occurrence: GB)
  Receive Date: 20151125
  Receipt Date: 20151204
  Transmission Date: 20160304
  Serious: Yes (Hospitalization)
  Sender: FDA-Public Use
  Company Number: GB-WATSON-2015-25094

PATIENT
  Age: 24 Year
  Sex: Male

DRUGS (1)
  1. DESMOPRESSIN (UNKNOWN) [Suspect]
     Active Substance: DESMOPRESSIN
     Indication: ENURESIS
     Dosage: 120 ?G, UNKNOWN
     Route: 060
     Dates: start: 20111214, end: 20151027

REACTIONS (3)
  - Hyponatraemia [Not Recovered/Not Resolved]
  - Haematuria [Unknown]
  - Blood pressure increased [Unknown]

NARRATIVE: CASE EVENT DATE: 20151027
